FAERS Safety Report 22182668 (Version 1)
Quarter: 2023Q2

REPORT INFORMATION
  Report Type: Spontaneous
  Country: US (occurrence: US)
  Receive Date: 20230406
  Receipt Date: 20230406
  Transmission Date: 20230721
  Serious: No
  Sender: FDA-Public Use
  Company Number: US-BAUSCH-BL-2023-005211

PATIENT
  Age: 49 Year
  Sex: Female
  Weight: 57 kg

DRUGS (3)
  1. WELLBUTRIN [Suspect]
     Active Substance: BUPROPION HYDROCHLORIDE
     Indication: Product used for unknown indication
     Route: 065
  2. VYVANSE [Suspect]
     Active Substance: LISDEXAMFETAMINE DIMESYLATE
     Indication: Product used for unknown indication
     Route: 065
  3. XANAX [Concomitant]
     Active Substance: ALPRAZOLAM
     Indication: Product used for unknown indication

REACTIONS (11)
  - Job dissatisfaction [Unknown]
  - General physical health deterioration [Unknown]
  - Mental disorder [Unknown]
  - Sleep disorder [Unknown]
  - Feeling abnormal [Unknown]
  - Memory impairment [Unknown]
  - Anxiety [Unknown]
  - Pain [Unknown]
  - Nightmare [Unknown]
  - Condition aggravated [Unknown]
  - Disturbance in attention [Unknown]
